FAERS Safety Report 8416791-9 (Version None)
Quarter: 2012Q2

REPORT INFORMATION
  Report Type: 
  Country: None (occurrence: None)
  Receive Date: 20120606
  Receipt Date: 20120601
  Transmission Date: 20120825
  Serious: Yes (Other)
  Sender: FDA-Public Use
  Company Number: ES-MERCK-1206ESP00004

PATIENT
  Sex: Female

DRUGS (3)
  1. FOSAPREPITANT DIMEGLUMINE [Suspect]
     Route: 041
     Dates: start: 20120501, end: 20120501
  2. DEXAMETHASONE [Concomitant]
     Route: 065
     Dates: start: 20120501, end: 20120501
  3. ONDANSETRON [Concomitant]
     Route: 065
     Dates: start: 20120501, end: 20120501

REACTIONS (2)
  - INFUSION SITE PAIN [None]
  - INJECTION SITE PHLEBITIS [None]
